FAERS Safety Report 5677168-2 (Version None)
Quarter: 2008Q1

REPORT INFORMATION
  Report Type: 
  Country: None (occurrence: None)
  Receive Date: 20080318
  Receipt Date: 20080311
  Transmission Date: 20080703
  Serious: Yes (Other)
  Sender: FDA-Public Use
  Company Number: 083-C5013-08030663

PATIENT
  Age: 72 Year
  Sex: Female
  Weight: 89 kg

DRUGS (7)
  1. CC-5013 (LENALIDOMIDE) (CAPSULES) [Suspect]
     Indication: MULTIPLE MYELOMA
     Dosage: 25 MG, DAILY, ORAL
     Route: 048
     Dates: start: 20080215, end: 20080308
  2. LEVOFLOXACIN [Concomitant]
  3. OMEPRAZOLE [Concomitant]
  4. TRAMADOL HCL [Concomitant]
  5. DIFLUCAN [Concomitant]
  6. SIMVACOR(SIMVASTATIN) [Concomitant]
  7. INSULIN (INSULIN) [Concomitant]

REACTIONS (2)
  - HYPOTENSION [None]
  - PANCREATITIS [None]
